FAERS Safety Report 17214537 (Version 1)
Quarter: 2019Q4

REPORT INFORMATION
  Report Type: Spontaneous
  Country: BR (occurrence: BR)
  Receive Date: 20191230
  Receipt Date: 20191230
  Transmission Date: 20200122
  Serious: Yes (Hospitalization)
  Sender: FDA-Public Use
  Company Number: BR-VALIDUS PHARMACEUTICALS LLC-BR-2019VAL000892

PATIENT

DRUGS (2)
  1. VITAMIN D3 [Suspect]
     Active Substance: CHOLECALCIFEROL
     Indication: CHRONIC KIDNEY DISEASE
     Dosage: 16 NG/ML (1 IN 1 D)
     Route: 048
  2. CALCITRIOL. [Suspect]
     Active Substance: CALCITRIOL
     Indication: CHRONIC KIDNEY DISEASE
     Dosage: 0.25 ?G, UNK
     Route: 065

REACTIONS (3)
  - Hypervitaminosis D [Recovered/Resolved]
  - Hypercalcaemia [Recovered/Resolved]
  - Renal impairment [Recovered/Resolved]
